FAERS Safety Report 6042659-1 (Version None)
Quarter: 2009Q1

REPORT INFORMATION
  Report Type: 
  Country: None (occurrence: None)
  Receive Date: 20090119
  Receipt Date: 20090108
  Transmission Date: 20090719
  Serious: Yes (Death, Hospitalization)
  Sender: FDA-Public Use
  Company Number: PHHY2008JP29763

PATIENT
  Sex: Male
  Weight: 52 kg

DRUGS (11)
  1. ICL670A ICL+DISTAB [Suspect]
     Indication: IRON OVERLOAD
     Dosage: 500 MG DAILY
     Route: 048
     Dates: start: 20080909, end: 20081018
  2. PRIMOBOLAN [Concomitant]
     Dosage: 60 MG
     Route: 048
     Dates: start: 20070510, end: 20081018
  3. FALECALCITRIOL [Concomitant]
     Dosage: 0.3 MG
     Route: 048
     Dates: start: 20070510, end: 20081018
  4. ALEVIATIN [Concomitant]
     Dosage: 300 MG
     Route: 048
     Dates: start: 20070510, end: 20081018
  5. HYALEIN [Concomitant]
     Dosage: 1 ML
     Route: 047
     Dates: start: 20070510, end: 20081018
  6. SODIUM HYALURONATE [Concomitant]
     Dosage: 3000 MG
     Route: 048
     Dates: start: 20080510, end: 20081016
  7. CALCIUM CARBONATE [Concomitant]
     Dosage: 3000 MG
     Route: 048
     Dates: start: 20080510, end: 20081016
  8. PREDONINE [Concomitant]
     Indication: MYELODYSPLASTIC SYNDROME
     Dosage: 5 MG
     Route: 048
     Dates: start: 20070510, end: 20081016
  9. TAKEPRON [Concomitant]
     Dosage: 15 MG
     Route: 048
     Dates: start: 20070510, end: 20081016
  10. ALOSENN [Concomitant]
     Dosage: 0.5 G
     Route: 048
     Dates: start: 20070510, end: 20081016
  11. NITRODERM [Concomitant]
     Indication: MYELODYSPLASTIC SYNDROME
     Dosage: 25 MG
     Route: 062
     Dates: start: 20070510, end: 20081016

REACTIONS (5)
  - ALANINE AMINOTRANSFERASE INCREASED [None]
  - BLOOD BILIRUBIN INCREASED [None]
  - CEREBRAL INFARCTION [None]
  - GAMMA-GLUTAMYLTRANSFERASE INCREASED [None]
  - LIVER DISORDER [None]
